FAERS Safety Report 8977519 (Version 1)
Quarter: 2012Q4

REPORT INFORMATION
  Report Type: 
  Country: DE (occurrence: DE)
  Receive Date: 20121220
  Receipt Date: 20121220
  Transmission Date: 20130627
  Serious: Yes (Other)
  Sender: FDA-Public Use
  Company Number: DE-WATSON-2012-22167

PATIENT
  Sex: Female

DRUGS (2)
  1. TRAMADOL HYDROCHLORIDE (UNKNOWN) [Suspect]
     Indication: BACK PAIN
     Dosage: 400 mg, daily
     Route: 048
  2. TRAMADOL HYDROCHLORIDE (UNKNOWN) [Suspect]
     Dosage: 200 mg, daily
     Route: 048

REACTIONS (4)
  - Gestational diabetes [Unknown]
  - Foetal macrosomia [Unknown]
  - Caesarean section [Unknown]
  - Exposure during pregnancy [Recovered/Resolved]
